FAERS Safety Report 5086577-4 (Version None)
Quarter: 2006Q3

REPORT INFORMATION
  Report Type: 
  Country: None (occurrence: None)
  Receive Date: 20060823
  Receipt Date: 20060621
  Transmission Date: 20061208
  Serious: Yes (Other)
  Sender: FDA-Public Use
  Company Number: JP-JPN-A200602223

PATIENT
  Age: 71 Year
  Sex: Female
  Weight: 54 kg

DRUGS (3)
  1. ZANTAC [Suspect]
     Indication: DRUG USE FOR UNKNOWN INDICATION
     Dosage: 4ML PER DAY
     Route: 042
     Dates: start: 20060620, end: 20060620
  2. DECADRON [Concomitant]
     Dosage: 1ML PER DAY
     Route: 042
     Dates: start: 20060620, end: 20060620
  3. SEISHOKU [Concomitant]
     Dosage: 100ML PER DAY
     Route: 042
     Dates: start: 20060620, end: 20060620

REACTIONS (2)
  - FEELING ABNORMAL [None]
  - SHOCK [None]
